FAERS Safety Report 5209450-7 (Version None)
Quarter: 2007Q1

REPORT INFORMATION
  Report Type: 
  Country: None (occurrence: None)
  Receive Date: 20070116
  Receipt Date: 20070104
  Transmission Date: 20070707
  Serious: Yes (Other)
  Sender: FDA-Public Use
  Company Number: GB-PFIZER INC-2006137594

PATIENT
  Age: 65 Year
  Sex: Male

DRUGS (6)
  1. NEURONTIN [Suspect]
     Indication: NEURALGIA
     Route: 048
  2. AUGMENTIN '125' [Concomitant]
     Route: 042
  3. LANTUS [Concomitant]
  4. DOSULEPIN [Concomitant]
  5. KETOPROFEN [Concomitant]
     Route: 061
  6. TAMSULOSIN HCL [Concomitant]

REACTIONS (1)
  - DRUG WITHDRAWAL SYNDROME [None]
